FAERS Safety Report 12994579 (Version 1)
Quarter: 2016Q4

REPORT INFORMATION
  Report Type: Spontaneous
  Country: US (occurrence: US)
  Receive Date: 20161202
  Receipt Date: 20161202
  Transmission Date: 20170207
  Serious: Yes (Other)
  Sender: FDA-Public Use
  Company Number: US-PFIZER INC-2016553520

PATIENT
  Age: 64 Year
  Sex: Male
  Weight: 191 kg

DRUGS (32)
  1. NORVASC [Suspect]
     Active Substance: AMLODIPINE BESYLATE
     Dosage: 10 MG, UNK
     Route: 054
  2. TRAZODONE [Concomitant]
     Active Substance: TRAZODONE HYDROCHLORIDE
  3. HYDROCHLOROTHIAZIDE. [Concomitant]
     Active Substance: HYDROCHLOROTHIAZIDE
  4. NORVASC [Suspect]
     Active Substance: AMLODIPINE BESYLATE
     Indication: HYPERTENSION
     Dosage: 10 MG, 3X/DAY
     Route: 054
     Dates: start: 2006
  5. LORATADINE. [Concomitant]
     Active Substance: LORATADINE
  6. ANASTROZOLE. [Concomitant]
     Active Substance: ANASTROZOLE
  7. LORAZEPAM. [Concomitant]
     Active Substance: LORAZEPAM
  8. ATIVAN [Concomitant]
     Active Substance: LORAZEPAM
  9. TRAMADOL. [Concomitant]
     Active Substance: TRAMADOL
  10. OXYCODONE [Concomitant]
     Active Substance: OXYCODONE
  11. METFORMIN [Concomitant]
     Active Substance: METFORMIN HYDROCHLORIDE
  12. ALPRAZOLAM. [Concomitant]
     Active Substance: ALPRAZOLAM
  13. AMITRIPTYLINE [Concomitant]
     Active Substance: AMITRIPTYLINE
  14. MELOXICAM. [Concomitant]
     Active Substance: MELOXICAM
  15. AZITHROMYCIN ANHYDROUS. [Concomitant]
     Active Substance: AZITHROMYCIN ANHYDROUS
  16. CIPROFLOXACIN. [Concomitant]
     Active Substance: CIPROFLOXACIN
  17. ALFOXAN [Concomitant]
  18. CYMBALTA [Concomitant]
     Active Substance: DULOXETINE HYDROCHLORIDE
  19. PREDNISOLONE. [Concomitant]
     Active Substance: PREDNISOLONE
  20. OMEPRAZOLE. [Concomitant]
     Active Substance: OMEPRAZOLE
  21. XANAX [Concomitant]
     Active Substance: ALPRAZOLAM
  22. IBUPROFEN. [Concomitant]
     Active Substance: IBUPROFEN
  23. LOSARTAN. [Concomitant]
     Active Substance: LOSARTAN
  24. ACETAMINOPHEN. [Concomitant]
     Active Substance: ACETAMINOPHEN
  25. CLINDAMYCIN. [Concomitant]
     Active Substance: CLINDAMYCIN
     Dosage: TOPICAL
     Route: 061
  26. LYRICA [Concomitant]
     Active Substance: PREGABALIN
  27. NORVASC [Suspect]
     Active Substance: AMLODIPINE BESYLATE
     Dosage: 15 MG, UNK
     Route: 054
  28. AMLODIPINE [Suspect]
     Active Substance: AMLODIPINE BESYLATE
     Indication: HYPERTENSION
     Dosage: 5 MG, 2X/DAY
     Route: 048
     Dates: start: 2006
  29. LOSACAR [Concomitant]
  30. ZOLOFT [Concomitant]
     Active Substance: SERTRALINE HYDROCHLORIDE
  31. GABAPENTIN. [Concomitant]
     Active Substance: GABAPENTIN
  32. CLONAZEPAM. [Concomitant]
     Active Substance: CLONAZEPAM

REACTIONS (28)
  - Rheumatic fever [Unknown]
  - Psoriasis [Unknown]
  - Hypersensitivity [Unknown]
  - Depressed mood [Unknown]
  - Gait disturbance [Unknown]
  - Decreased appetite [Unknown]
  - Hypoaesthesia [Unknown]
  - Drug ineffective [Unknown]
  - Intentional product misuse [Unknown]
  - Headache [Unknown]
  - Fungal infection [Unknown]
  - Somnolence [Unknown]
  - Type 1 diabetes mellitus [Unknown]
  - Fibromyalgia [Unknown]
  - Lethargy [Unknown]
  - Blood magnesium decreased [Unknown]
  - Off label use [Unknown]
  - Neoplasm malignant [Unknown]
  - Metabolic disorder [Unknown]
  - Cutaneous lupus erythematosus [Unknown]
  - Cardiac disorder [Unknown]
  - Gastric ulcer [Unknown]
  - Scleritis [Unknown]
  - Rheumatoid arthritis [Unknown]
  - Suicidal ideation [Unknown]
  - Pyrexia [Unknown]
  - Anorgasmia [Unknown]
  - Bacterial infection [Unknown]

NARRATIVE: CASE EVENT DATE: 20151106
